FAERS Safety Report 7131247-1 (Version None)
Quarter: 2010Q4

REPORT INFORMATION
  Report Type: 
  Country: None (occurrence: None)
  Receive Date: 20101201
  Receipt Date: 20101126
  Transmission Date: 20110411
  Serious: Yes (Other)
  Sender: FDA-Public Use
  Company Number: ES-BRISTOL-MYERS SQUIBB COMPANY-15409246

PATIENT

DRUGS (1)
  1. SUSTIVA [Suspect]

REACTIONS (1)
  - NERVOUS SYSTEM DISORDER [None]
